FAERS Safety Report 7357071-2 (Version None)
Quarter: 2011Q1

REPORT INFORMATION
  Report Type: 
  Country: None (occurrence: None)
  Receive Date: 20110317
  Receipt Date: 20100908
  Transmission Date: 20110831
  Serious: Yes (Hospitalization)
  Sender: FDA-Public Use
  Company Number: US-BAYER-201018575NA

PATIENT
  Sex: Female
  Weight: 99.773 kg

DRUGS (9)
  1. ALEVE [Concomitant]
  2. CEPHALEXIN [Concomitant]
     Indication: URINARY TRACT INFECTION
  3. TRIAMCINOLONE [TRIAMCINOLONE ACETONIDE] [Concomitant]
     Dosage: UNK UNK, BID
  4. PERCOCET [Concomitant]
     Indication: PAIN
     Dosage: UNK UNK, PRN
  5. PENICILLIN [Concomitant]
     Indication: SINUSITIS
  6. PROZAC [Concomitant]
     Dosage: 10 MG, QD
  7. NICODERM CQ [Concomitant]
  8. NIZORAL [Concomitant]
  9. YASMIN [Suspect]
     Indication: AMENORRHOEA
     Dosage: UNK UNK, UNK
     Route: 048
     Dates: start: 20061006

REACTIONS (5)
  - BILE DUCT STONE [None]
  - ABDOMINAL PAIN UPPER [None]
  - CHOLECYSTITIS [None]
  - CHOLELITHIASIS [None]
  - PAIN [None]
